FAERS Safety Report 5441984-2 (Version None)
Quarter: 2007Q3

REPORT INFORMATION
  Report Type: 
  Country: None (occurrence: None)
  Receive Date: 20070904
  Receipt Date: 20070830
  Transmission Date: 20080115
  Serious: Yes (Hospitalization)
  Sender: FDA-Public Use
  Company Number: B0485246A

PATIENT
  Sex: Male
  Weight: 3 kg

DRUGS (6)
  1. RETROVIR [Suspect]
     Indication: ANTIVIRAL PROPHYLAXIS
     Dosage: .46ML FOUR TIMES PER DAY
     Route: 042
     Dates: start: 20070621
  2. RETROVIR [Suspect]
     Dosage: .6ML FOUR TIMES PER DAY
     Route: 048
     Dates: start: 20070601
  3. COMBIVIR [Suspect]
     Indication: HIV INFECTION
     Dates: start: 20070215, end: 20070621
  4. RETROVIR [Suspect]
     Dates: start: 20070621, end: 20070621
  5. VIRACEPT [Suspect]
     Indication: HIV INFECTION
     Dates: start: 20070215, end: 20070601
  6. KALETRA [Suspect]
     Indication: HIV INFECTION
     Dates: start: 20070601, end: 20070621

REACTIONS (6)
  - DRUG EXPOSURE DURING PREGNANCY [None]
  - GASTROINTESTINAL DISORDER [None]
  - HYPOGLYCAEMIA [None]
  - HYPONATRAEMIA [None]
  - PROTEIN TOTAL DECREASED [None]
  - TREMOR [None]
